FAERS Safety Report 8350093-4 (Version None)
Quarter: 2012Q2

REPORT INFORMATION
  Report Type: 
  Country: None (occurrence: None)
  Receive Date: 20120510
  Receipt Date: 20120507
  Transmission Date: 20120825
  Serious: No
  Sender: FDA-Public Use
  Company Number: US-PFIZER INC-2012112117

PATIENT
  Sex: Female
  Weight: 72.6 kg

DRUGS (9)
  1. CHANTIX [Suspect]
     Indication: SMOKING CESSATION THERAPY
     Dosage: 0.5MG; DAILY
     Dates: start: 20110101, end: 20110101
  2. PROMETRIUM [Concomitant]
     Indication: HORMONE THERAPY
     Dosage: 100 MG; DAILY
  3. CHANTIX [Suspect]
     Dosage: 0.5 MG, 2X/DAY
     Dates: start: 20120201, end: 20120101
  4. CHANTIX [Suspect]
     Dosage: UNK
     Dates: start: 20110101, end: 20110101
  5. CHANTIX [Suspect]
     Dosage: 1 MG, 2X/DAY (TWO TABLETS OF 0.5 MG TWO TIMES A DAY)
     Dates: start: 20120101
  6. METHADONE [Concomitant]
     Indication: PAIN
     Dosage: 20 MG; DAILY
  7. ZOLOFT [Concomitant]
     Indication: DEPRESSION
     Dosage: 200 MG; DAILY
  8. DROSPIRENONE AND ETHINYL ESTRADIOL [Concomitant]
     Indication: HORMONE THERAPY
     Dosage: 0.5/1 MG DAILY
  9. SYNTHROID [Concomitant]
     Indication: AUTOIMMUNE THYROIDITIS
     Dosage: 112 UG; DAILY

REACTIONS (4)
  - STRESS [None]
  - DRUG DISPENSING ERROR [None]
  - NAUSEA [None]
  - DRUG INEFFECTIVE [None]
